FAERS Safety Report 13040648 (Version 1)
Quarter: 2016Q4

REPORT INFORMATION
  Report Type: Spontaneous
  Country: US (occurrence: US)
  Receive Date: 20161219
  Receipt Date: 20161219
  Transmission Date: 20170207
  Serious: Yes (Death, Hospitalization, Other)
  Sender: FDA-Public Use
  Company Number: US-GLAXOSMITHKLINE-US2016186814

PATIENT
  Age: 78 Year
  Sex: Female

DRUGS (11)
  1. PAXIL [Concomitant]
     Active Substance: PAROXETINE HYDROCHLORIDE
  2. ZOCOR [Concomitant]
     Active Substance: SIMVASTATIN
  3. ADVAIR DISKUS [Suspect]
     Active Substance: FLUTICASONE PROPIONATE\SALMETEROL XINAFOATE
     Indication: CHRONIC OBSTRUCTIVE PULMONARY DISEASE
     Dosage: 1 PUFF(S), BID
     Route: 055
  4. DRONABINOL. [Concomitant]
     Active Substance: DRONABINOL
  5. OMEPRAZOLE. [Concomitant]
     Active Substance: OMEPRAZOLE
  6. VENTOLIN HFA [Suspect]
     Active Substance: ALBUTEROL SULFATE
     Indication: CHRONIC OBSTRUCTIVE PULMONARY DISEASE
     Dosage: 2 PUFF(S), VA
     Route: 055
  7. LEVOTHYROXINE. [Concomitant]
     Active Substance: LEVOTHYROXINE
  8. CALCIUM [Concomitant]
     Active Substance: CALCIUM
  9. TRAZODONE [Concomitant]
     Active Substance: TRAZODONE HYDROCHLORIDE
  10. BUDESONIDE. [Concomitant]
     Active Substance: BUDESONIDE
  11. ONDANSETRON [Concomitant]
     Active Substance: ONDANSETRON

REACTIONS (11)
  - Lung disorder [Unknown]
  - Lung adenocarcinoma [Unknown]
  - Pulmonary mass [Unknown]
  - Oxygen saturation decreased [Unknown]
  - Drug ineffective [Unknown]
  - Drug dose omission [Unknown]
  - Weight decreased [Unknown]
  - Death [Fatal]
  - Lung carcinoma cell type unspecified stage IV [Fatal]
  - Pneumonia [Recovered/Resolved with Sequelae]
  - Dyspnoea [Unknown]

NARRATIVE: CASE EVENT DATE: 201309
